FAERS Safety Report 14360603 (Version 1)
Quarter: 2018Q1

REPORT INFORMATION
  Report Type: Other
  Country: GB (occurrence: GB)
  Receive Date: 20180106
  Receipt Date: 20180106
  Transmission Date: 20180509
  Serious: Yes (Other)
  Sender: FDA-Public Use
  Company Number: GB-GLENMARK PHARMACEUTICALS-2017GMK030359

PATIENT

DRUGS (3)
  1. ALZAIN [Concomitant]
     Indication: PRODUCT USED FOR UNKNOWN INDICATION
     Dosage: 2 DF, OD
     Route: 065
     Dates: start: 20171205
  2. AMITRIPTYLINE HYDROCHLORIDE. [Concomitant]
     Active Substance: AMITRIPTYLINE HYDROCHLORIDE
     Indication: PRODUCT USED FOR UNKNOWN INDICATION
     Dosage: 2 DF, OD, EACH NIGHT
     Route: 065
     Dates: start: 20170622, end: 20171128
  3. GABAPENTIN. [Suspect]
     Active Substance: GABAPENTIN
     Indication: PRODUCT USED FOR UNKNOWN INDICATION
     Dosage: UNK
     Route: 065
     Dates: start: 20171128

REACTIONS (6)
  - Abdominal distension [Recovering/Resolving]
  - Nausea [Recovering/Resolving]
  - Abnormal loss of weight [Recovering/Resolving]
  - Muscle spasms [Unknown]
  - Gastrointestinal pain [Recovering/Resolving]
  - Decreased appetite [Unknown]

NARRATIVE: CASE EVENT DATE: 20171205
